FAERS Safety Report 14160060 (Version 4)
Quarter: 2020Q3

REPORT INFORMATION
  Report Type: Report from Study
  Country: CA (occurrence: CA)
  Receive Date: 20171106
  Receipt Date: 20180511
  Transmission Date: 20201104
  Serious: Yes (Death, Hospitalization, Other)
  Sender: FDA-Public Use
  Company Number: CA-ASTRAZENECA-2017SE25595

PATIENT
  Age: 70 Year
  Sex: Male

DRUGS (19)
  1. ATENOLOL. [Concomitant]
     Active Substance: ATENOLOL
     Route: 065
     Dates: start: 20170215
  2. CARBOPLATIN. [Suspect]
     Active Substance: CARBOPLATIN
     Indication: BLADDER CANCER
     Dosage: 345 AUC (21 DAY CYCLE)
     Route: 042
     Dates: start: 20160817, end: 20161102
  3. OLMESARTAN [Concomitant]
     Active Substance: OLMESARTAN
     Route: 065
     Dates: start: 2001
  4. ASPIRIN. [Concomitant]
     Active Substance: ASPIRIN
     Route: 065
     Dates: start: 2006
  5. TYLENOL [Concomitant]
     Active Substance: ACETAMINOPHEN
     Route: 065
     Dates: start: 2006
  6. TIOTROPIUM [Concomitant]
     Active Substance: TIOTROPIUM
     Route: 065
     Dates: start: 2008
  7. BUDESONIDE WITH FORMOTEROL [Concomitant]
     Route: 065
     Dates: start: 2008
  8. REGLAN [Concomitant]
     Active Substance: METOCLOPRAMIDE HYDROCHLORIDE
     Route: 065
     Dates: start: 20161102
  9. DURVALUMAB. [Suspect]
     Active Substance: DURVALUMAB
     Indication: BLADDER CANCER
     Dosage: 1125 MG (21 DAY CYCLE)
     Route: 042
     Dates: end: 20170222
  10. MACROBID [Concomitant]
     Active Substance: NITROFURANTOIN\NITROFURANTOIN MONOHYDRATE
     Route: 065
     Dates: start: 20170215, end: 20170307
  11. GEMCITABINE. [Suspect]
     Active Substance: GEMCITABINE
     Indication: BLADDER CANCER
     Dosage: 1240 MG (21 DAY CYCLE)
     Route: 042
     Dates: start: 20160817, end: 20161109
  12. LIPITOR [Concomitant]
     Active Substance: ATORVASTATIN CALCIUM
     Route: 065
     Dates: start: 20170215, end: 20170307
  13. INDOCID [Concomitant]
     Active Substance: INDOMETHACIN
     Route: 065
     Dates: start: 20170304, end: 20170308
  14. TREMELIMUMAB. [Suspect]
     Active Substance: TREMELIMUMAB
     Indication: BLADDER CANCER
     Dosage: 56 MG (21 DAY CYCLE)
     Route: 042
     Dates: start: 20160817, end: 20161102
  15. SYNTHROID [Concomitant]
     Active Substance: LEVOTHYROXINE SODIUM
     Route: 065
     Dates: start: 1966
  16. NAPROXEN. [Concomitant]
     Active Substance: NAPROXEN
     Route: 065
     Dates: start: 2010
  17. DURVALUMAB. [Suspect]
     Active Substance: DURVALUMAB
     Indication: BLADDER CANCER
     Dosage: 1125 MG (21 DAY CYCLE)
     Route: 042
     Dates: start: 20160817, end: 20161102
  18. IMODIUM [Concomitant]
     Active Substance: LOPERAMIDE HYDROCHLORIDE
     Route: 065
     Dates: start: 20161220
  19. PROCHLORPERAZINE. [Concomitant]
     Active Substance: PROCHLORPERAZINE
     Route: 065
     Dates: start: 20160818

REACTIONS (3)
  - Myocardial infarction [Fatal]
  - Diarrhoea [Recovered/Resolved]
  - Platelet count decreased [Not Recovered/Not Resolved]

NARRATIVE: CASE EVENT DATE: 20170308
